FAERS Safety Report 21956243 (Version 2)
Quarter: 2023Q1

REPORT INFORMATION
  Report Type: Spontaneous
  Country: US (occurrence: US)
  Receive Date: 20230206
  Receipt Date: 20230216
  Transmission Date: 20230418
  Serious: No
  Sender: FDA-Public Use
  Company Number: US-VIIV HEALTHCARE LIMITED-US2023AMR011682

PATIENT
  Sex: Female

DRUGS (8)
  1. RILPIVIRINE [Suspect]
     Active Substance: RILPIVIRINE
     Indication: Product used for unknown indication
     Dosage: UNK
     Route: 065
     Dates: start: 20220802
  2. RILPIVIRINE [Suspect]
     Active Substance: RILPIVIRINE
     Dosage: UNK
     Route: 065
     Dates: start: 20220830
  3. RILPIVIRINE [Suspect]
     Active Substance: RILPIVIRINE
     Dosage: UNK
     Route: 065
     Dates: start: 20221102
  4. CABOTEGRAVIR [Suspect]
     Active Substance: CABOTEGRAVIR
     Indication: Product used for unknown indication
     Dosage: UNK, EVERY 2 MONTH INJECTIONS
     Route: 065
     Dates: start: 20220802
  5. CABOTEGRAVIR [Suspect]
     Active Substance: CABOTEGRAVIR
     Dosage: UNK, EVERY 2 MONTH INJECTIONS
     Route: 065
     Dates: start: 20220830
  6. CABOTEGRAVIR [Suspect]
     Active Substance: CABOTEGRAVIR
     Dosage: UNK, EVERY 2 MONTH INJECTIONS
     Route: 065
     Dates: start: 20221102
  7. VOCABRIA [Concomitant]
     Active Substance: CABOTEGRAVIR SODIUM
     Indication: Product used for unknown indication
     Route: 048
     Dates: start: 202207
  8. EDURANT [Concomitant]
     Active Substance: RILPIVIRINE HYDROCHLORIDE
     Indication: Product used for unknown indication
     Route: 048
     Dates: start: 202207

REACTIONS (3)
  - Wrong technique in product usage process [Unknown]
  - Treatment failure [Unknown]
  - Viral load increased [Unknown]

NARRATIVE: CASE EVENT DATE: 20220101
